FAERS Safety Report 7991560-2 (Version None)
Quarter: 2011Q4

REPORT INFORMATION
  Report Type: 
  Country: None (occurrence: None)
  Receive Date: 20111219
  Receipt Date: 20111213
  Transmission Date: 20120403
  Serious: Yes (Hospitalization)
  Sender: FDA-Public Use
  Company Number: US-PFIZER INC-2011303801

PATIENT
  Sex: Female
  Weight: 86.168 kg

DRUGS (9)
  1. AMPICILLIN SODIUM/SULBACTAM SODIUM [Suspect]
     Indication: EAR INFECTION
  2. AMPICILLIN SODIUM/SULBACTAM SODIUM [Suspect]
     Indication: INFECTION
  3. MEROPENEM [Concomitant]
     Dosage: UNK
  4. DYAZIDE [Concomitant]
     Indication: HYPERTENSION
     Dosage: UNK
  5. AMPICILLIN SODIUM/SULBACTAM SODIUM [Suspect]
     Indication: OSTEOMYELITIS
     Dosage: 3 G, 4X/DAY
     Route: 042
     Dates: start: 20020101, end: 20020101
  6. AMPICILLIN SODIUM/SULBACTAM SODIUM [Suspect]
     Indication: SINUSITIS
  7. IMMUNOGLOBULINS [Concomitant]
     Dosage: UNK
     Route: 042
  8. CUBICIN [Concomitant]
     Dosage: UNK
  9. AMPICILLIN SODIUM/SULBACTAM SODIUM [Suspect]
     Indication: AUTOIMMUNE DISORDER

REACTIONS (4)
  - ANAPHYLACTIC REACTION [None]
  - URTICARIA [None]
  - DYSPNOEA [None]
  - HYPERSENSITIVITY [None]
